FAERS Safety Report 5478819-8 (Version None)
Quarter: 2007Q4

REPORT INFORMATION
  Report Type: 
  Country: None (occurrence: None)
  Receive Date: 20071005
  Receipt Date: 20071001
  Transmission Date: 20080405
  Serious: Yes (Death)
  Sender: FDA-Public Use
  Company Number: US-GENENTECH-248654

PATIENT
  Sex: Male
  Weight: 132.4 kg

DRUGS (10)
  1. RITUXIMAB [Suspect]
     Indication: NON-HODGKIN'S LYMPHOMA
     Dosage: 375 MG/M2, X2
     Route: 042
     Dates: start: 20070704
  2. FLUDARABINE PHOSPHATE [Concomitant]
     Indication: DRUG USE FOR UNKNOWN INDICATION
     Dates: start: 20070706
  3. CYCLOPHOSPHAMIDE [Concomitant]
     Indication: DRUG USE FOR UNKNOWN INDICATION
     Dates: start: 20070705, end: 20070705
  4. MYCOPHENOLATE MOFETIL [Concomitant]
     Indication: GRAFT VERSUS HOST DISEASE
     Dates: start: 20070707
  5. CYCLOSPORINE [Concomitant]
     Indication: GRAFT VERSUS HOST DISEASE
     Dates: start: 20070707
  6. VANCOMYCIN [Concomitant]
     Indication: PYREXIA
     Dates: start: 20070729
  7. VANCOMYCIN [Concomitant]
     Indication: DIARRHOEA
  8. ZOSYN [Concomitant]
     Indication: PYREXIA
     Dates: start: 20070729
  9. ZOSYN [Concomitant]
     Indication: DIARRHOEA
  10. FLAGYL [Concomitant]
     Indication: CLOSTRIDIAL INFECTION
     Dosage: UNK, UNK
     Dates: start: 20070731, end: 20070802

REACTIONS (1)
  - ERYTHEMA MULTIFORME [None]
